FAERS Safety Report 4741907-5 (Version None)
Quarter: 2005Q3

REPORT INFORMATION
  Report Type: 
  Country: None (occurrence: None)
  Receive Date: 20050801
  Receipt Date: 20050620
  Transmission Date: 20060218
  Serious: No
  Sender: FDA-Public Use
  Company Number: 2005PV000079

PATIENT
  Age: 67 Year
  Sex: Male

DRUGS (10)
  1. BYETTA [Suspect]
     Indication: DIABETES MELLITUS NON-INSULIN-DEPENDENT
     Dosage: 5 UG;BID;SC
     Route: 058
     Dates: start: 20050614
  2. METFORMIN [Concomitant]
  3. LANTUS [Concomitant]
  4. AMARYL [Concomitant]
  5. ENALAPRIL [Concomitant]
  6. NEXIUM [Concomitant]
  7. TOPROL-XL [Concomitant]
  8. FLOMAX [Concomitant]
  9. ECOTRIN [Concomitant]
  10. LIPITOR [Concomitant]

REACTIONS (4)
  - DIARRHOEA [None]
  - DIZZINESS EXERTIONAL [None]
  - DYSPNOEA EXERTIONAL [None]
  - RHINORRHOEA [None]
